FAERS Safety Report 14078542 (Version 1)
Quarter: 2017Q4

REPORT INFORMATION
  Report Type: Spontaneous
  Country: US (occurrence: None)
  Receive Date: 20171012
  Receipt Date: 20171012
  Transmission Date: 20180321
  Serious: No
  Sender: FDA-Public Use
  Company Number: None

PATIENT
  Age: 40 Year
  Sex: Female
  Weight: 77 kg

DRUGS (1)
  1. INTRON A [Suspect]
     Active Substance: INTERFERON ALFA-2B
     Dosage: TOTAL DOSE ADMINISTERED - 25 MU
     Dates: end: 20120316

REACTIONS (2)
  - Formication [None]
  - Muscle disorder [None]

NARRATIVE: CASE EVENT DATE: 20120212
